FAERS Safety Report 19778399 (Version 1)
Quarter: 2021Q3

REPORT INFORMATION
  Report Type: Spontaneous
  Country: IN (occurrence: IN)
  Receive Date: 20210902
  Receipt Date: 20210902
  Transmission Date: 20211014
  Serious: Yes (Other)
  Sender: FDA-Public Use
  Company Number: IN-PFIZER INC-202101099094

PATIENT
  Age: 7 Year
  Sex: Male

DRUGS (1)
  1. CYTARABINE. [Suspect]
     Active Substance: CYTARABINE
     Indication: ACUTE MYELOID LEUKAEMIA
     Dosage: UNK, 2X/DAY, 3 G/M2, (ON DAY 1, 3, AND 5)

REACTIONS (1)
  - Posterior reversible encephalopathy syndrome [Recovered/Resolved]
